FAERS Safety Report 4776313-0 (Version None)
Quarter: 2005Q3

REPORT INFORMATION
  Report Type: 
  Country: None (occurrence: None)
  Receive Date: 20050921
  Receipt Date: 20050920
  Transmission Date: 20060218
  Serious: Yes (Hospitalization, Other)
  Sender: FDA-Public Use
  Company Number: HQWYE491615SEP05

PATIENT
  Age: 76 Year
  Sex: Male

DRUGS (4)
  1. PANTOPRAZOLE SODIUM [Suspect]
     Dosage: 40 MG 1X PER 1 DAY ORAL
     Route: 048
     Dates: start: 20050701
  2. RAMIPRIL [Concomitant]
  3. KARDEGIC ACETYLSALICYLATE LYSINE) [Concomitant]
  4. DOBUTREX [Concomitant]

REACTIONS (1)
  - DERMATITIS EXFOLIATIVE [None]
